FAERS Safety Report 16952193 (Version 1)
Quarter: 2019Q4

REPORT INFORMATION
  Report Type: Spontaneous
  Country: US (occurrence: US)
  Receive Date: 20190904
  Receipt Date: 20190904
  Transmission Date: 20200122
  Serious: No
  Sender: FDA-Public Use
  Company Number: None

PATIENT
  Age: 80 Year
  Sex: Male

DRUGS (1)
  1. SUTENT [Suspect]
     Active Substance: SUNITINIB MALATE
     Indication: RENAL CELL CARCINOMA
     Route: 048
     Dates: start: 201906

REACTIONS (5)
  - Anxiety [None]
  - Confusional state [None]
  - Anger [None]
  - Fatigue [None]
  - Cerebrovascular accident [None]

NARRATIVE: CASE EVENT DATE: 20190904
